FAERS Safety Report 10539215 (Version 1)
Quarter: 2014Q4

REPORT INFORMATION
  Report Type: Spontaneous
  Country: CN (occurrence: CN)
  Receive Date: 20141023
  Receipt Date: 20141023
  Transmission Date: 20150529
  Serious: Yes (Other)
  Sender: FDA-Public Use
  Company Number: CN-ELI_LILLY_AND_COMPANY-CN201410005231

PATIENT
  Sex: Male

DRUGS (3)
  1. PROSCAR [Concomitant]
     Active Substance: FINASTERIDE
     Indication: POLLAKIURIA
     Dosage: 5 MG, QD
     Route: 048
     Dates: start: 20140227, end: 20140324
  2. CINEPAZIDE MALEATE [Suspect]
     Active Substance: CINEPAZIDE MALEATE
     Indication: VASCULAR INSUFFICIENCY
     Dosage: 240 MG, QD
     Route: 042
     Dates: start: 20140312, end: 20140323
  3. PROZAC [Suspect]
     Active Substance: FLUOXETINE HYDROCHLORIDE
     Indication: DEPRESSION
     Dosage: 20 MG, QD
     Route: 048
     Dates: start: 20140312, end: 20140324

REACTIONS (2)
  - Chronic hepatitis [Recovered/Resolved]
  - Drug-induced liver injury [Recovered/Resolved]
